FAERS Safety Report 6647701-2 (Version None)
Quarter: 2010Q1

REPORT INFORMATION
  Report Type: 
  Country: None (occurrence: None)
  Receive Date: 20100323
  Receipt Date: 20100315
  Transmission Date: 20100710
  Serious: Yes (Hospitalization)
  Sender: FDA-Public Use
  Company Number: PL-BRISTOL-MYERS SQUIBB COMPANY-15021876

PATIENT
  Age: 31 Year
  Sex: Female

DRUGS (5)
  1. ABILIFY [Suspect]
     Dates: start: 20100211
  2. DEPAKINE CHRONO [Concomitant]
     Dosage: 1 DF = 20500 UNIT NOT SPECIFIED.
  3. KLOZAPOL [Concomitant]
     Dosage: INCREASING DOSE OF 50MG/D UPTO 300MG/D.
  4. CLOPIXOL [Concomitant]
     Dosage: 1 DOSAGE FORM = 1 AMP.
  5. TISERCIN [Concomitant]

REACTIONS (1)
  - SCHIZOPHRENIA [None]
